FAERS Safety Report 4754822-8 (Version None)
Quarter: 2005Q3

REPORT INFORMATION
  Report Type: 
  Country: None (occurrence: None)
  Receive Date: 20050826
  Receipt Date: 20050826
  Transmission Date: 20060218
  Serious: Yes (Other)
  Sender: FDA-Public Use
  Company Number: None

PATIENT
  Age: 60 Year
  Sex: Male
  Weight: 84.8226 kg

DRUGS (1)
  1. SILDENAFIL CITRATE [Suspect]
     Indication: ORGANIC ERECTILE DYSFUNCTION
     Dosage: 100 MG PO
     Route: 048
     Dates: start: 20030117, end: 20050601

REACTIONS (2)
  - OPTIC ISCHAEMIC NEUROPATHY [None]
  - VISUAL ACUITY REDUCED [None]
